FAERS Safety Report 12927053 (Version 2)
Quarter: 2016Q4

REPORT INFORMATION
  Report Type: Report from Study
  Country: DE (occurrence: DE)
  Receive Date: 20161109
  Receipt Date: 20161206
  Transmission Date: 20170207
  Serious: Yes (Other)
  Sender: FDA-Public Use
  Company Number: DE-GILEAD-2016-0242061

PATIENT
  Sex: Female
  Weight: 72 kg

DRUGS (15)
  1. SIMVASTATIN. [Concomitant]
     Active Substance: SIMVASTATIN
     Indication: HYPERTENSION
  2. TORASEMID [Concomitant]
     Active Substance: TORSEMIDE
  3. LORAZEPAM. [Concomitant]
     Active Substance: LORAZEPAM
  4. ACIC                               /00587301/ [Concomitant]
  5. PANTOZOL [Concomitant]
     Active Substance: PANTOPRAZOLE SODIUM
  6. BISOPROLOL [Concomitant]
     Active Substance: BISOPROLOL
     Indication: HYPERTENSION
  7. PRAVASTATIN. [Concomitant]
     Active Substance: PRAVASTATIN
     Dosage: UNK
     Dates: start: 20161013
  8. IDELALISIB [Suspect]
     Active Substance: IDELALISIB
     Indication: CHRONIC LYMPHOCYTIC LEUKAEMIA
     Dosage: 300 MG, QD
     Route: 048
     Dates: start: 20160804
  9. MABTHERA [Concomitant]
     Active Substance: RITUXIMAB
  10. MONO EMBOLEX [Concomitant]
     Active Substance: CERTOPARIN SODIUM
  11. ATOVAQUON [Concomitant]
  12. XARELTO [Concomitant]
     Active Substance: RIVAROXABAN
  13. ZOPICLON [Concomitant]
     Active Substance: ZOPICLONE
  14. FOLIC ACID. [Concomitant]
     Active Substance: FOLIC ACID
  15. VINCRISTIN [Concomitant]
     Active Substance: VINCRISTINE

REACTIONS (5)
  - Leukopenia [Recovered/Resolved]
  - Leukopenia [Recovered/Resolved]
  - Leukopenia [Recovered/Resolved]
  - Leukopenia [Not Recovered/Not Resolved]
  - Bronchitis bacterial [Recovered/Resolved]

NARRATIVE: CASE EVENT DATE: 20160815
